FAERS Safety Report 12713132 (Version 2)
Quarter: 2016Q3

REPORT INFORMATION
  Report Type: Spontaneous
  Country: US (occurrence: US)
  Receive Date: 20160902
  Receipt Date: 20160907
  Transmission Date: 20161109
  Serious: No
  Sender: FDA-Public Use
  Company Number: US-PFIZER INC-2016409644

PATIENT
  Age: 61 Year
  Sex: Female
  Weight: 90.72 kg

DRUGS (12)
  1. LYRICA [Suspect]
     Active Substance: PREGABALIN
     Dosage: 2 DF, 2X/DAY (TWO TABLETS TWICE DAILY)
     Route: 048
     Dates: start: 20160212
  2. LYRICA [Suspect]
     Active Substance: PREGABALIN
     Dosage: 150 MG, 3X/DAY
     Dates: start: 20160614
  3. PERSANTINE [Suspect]
     Active Substance: DIPYRIDAMOLE
     Indication: ANTICOAGULANT THERAPY
     Dosage: 25 MG, 1X/DAY
     Route: 048
     Dates: start: 2010
  4. POTASSIUM CHLORIDE. [Suspect]
     Active Substance: POTASSIUM CHLORIDE
     Indication: BLOOD POTASSIUM DECREASED
     Dosage: 10 MG, 1X/DAY
     Route: 048
     Dates: start: 201509
  5. LYRICA [Suspect]
     Active Substance: PREGABALIN
     Dosage: 200 MG, 3X/DAY
     Dates: start: 20160817, end: 20160826
  6. LYRICA [Suspect]
     Active Substance: PREGABALIN
     Dosage: 200 MG, 2X/DAY
     Dates: start: 20160826
  7. HCD/APAP [Concomitant]
     Indication: PAIN
     Dosage: UNK (40MG HYDROCODONE/200MG ACETAMINOPHEN, ONE EVERY 8 HOURS)
     Route: 048
     Dates: end: 20160817
  8. LYRICA [Suspect]
     Active Substance: PREGABALIN
     Indication: NEUROPATHY PERIPHERAL
     Dosage: 75 MG, 3X/DAY
     Route: 048
     Dates: start: 201601
  9. LYRICA [Suspect]
     Active Substance: PREGABALIN
     Dosage: 450 MG, UNK
  10. LYRICA [Suspect]
     Active Substance: PREGABALIN
     Dosage: 150 MG, 3X/DAY
  11. LYRICA [Suspect]
     Active Substance: PREGABALIN
     Dosage: 150 MG, 2X/DAY
     Dates: start: 201604
  12. TURMERIC [Suspect]
     Active Substance: TURMERIC
     Indication: PAIN
     Dosage: 1200 MG, 2X/DAY
     Route: 048
     Dates: start: 201602, end: 20160812

REACTIONS (6)
  - Drug ineffective [Not Recovered/Not Resolved]
  - Drug intolerance [Unknown]
  - Weight increased [Not Recovered/Not Resolved]
  - Somnolence [Recovering/Resolving]
  - Drug screen false positive [Unknown]
  - Incoherent [Unknown]

NARRATIVE: CASE EVENT DATE: 2016
